FAERS Safety Report 4768150-8 (Version None)
Quarter: 2005Q3

REPORT INFORMATION
  Report Type: 
  Country: None (occurrence: None)
  Receive Date: 20050908
  Receipt Date: 20050707
  Transmission Date: 20060218
  Serious: Yes (Disabling)
  Sender: FDA-Public Use
  Company Number: A03200502039

PATIENT
  Age: 56 Year
  Sex: Female
  Weight: 57.6068 kg

DRUGS (4)
  1. ELOXATIN [Suspect]
     Indication: PANCREATIC CARCINOMA METASTATIC
     Dosage: 85 MG/M2 Q2W - INTRAVENOUS NOS
     Route: 042
     Dates: start: 20050630, end: 20050630
  2. GEMCITABINE [Concomitant]
  3. PALONOSETRON HYDROCHLORIDE [Concomitant]
  4. DEXAMETHASONE [Concomitant]

REACTIONS (3)
  - HYPOAESTHESIA [None]
  - NEUROPATHY PERIPHERAL [None]
  - TREMOR [None]
